FAERS Safety Report 22162077 (Version 4)
Quarter: 2023Q4

REPORT INFORMATION
  Report Type: Report from Study
  Country: US (occurrence: US)
  Receive Date: 20230331
  Receipt Date: 20231006
  Transmission Date: 20240110
  Serious: Yes (Other)
  Sender: FDA-Public Use
  Company Number: US-ABBVIE-4710247

PATIENT
  Sex: Male

DRUGS (5)
  1. HUMIRA [Suspect]
     Active Substance: ADALIMUMAB
     Indication: Psoriatic arthropathy
     Dosage: FORM STRENGTH 40 MILLIGRAMS
     Route: 058
     Dates: start: 20041118
  2. HUMIRA [Suspect]
     Active Substance: ADALIMUMAB
     Indication: Psoriasis
     Dosage: STRENGTH: 40 MILLIGRAM
     Route: 058
  3. HUMIRA [Suspect]
     Active Substance: ADALIMUMAB
     Dosage: FORM STRENGTH 40 MILLIGRAMS
     Route: 058
  4. HUMIRA [Suspect]
     Active Substance: ADALIMUMAB
     Dosage: TIME INTERVAL: TOTAL: FORM STRENGTH 40 MILLIGRAMS
     Route: 058
     Dates: start: 20230310, end: 20230310
  5. HUMIRA [Suspect]
     Active Substance: ADALIMUMAB
     Dosage: TIME INTERVAL: TOTAL: FORM STRENGTH 40 MILLIGRAMS
     Route: 058
     Dates: start: 20230317, end: 20230317

REACTIONS (6)
  - Cataract [Unknown]
  - Pulmonary mass [Recovering/Resolving]
  - Dyspnoea [Unknown]
  - Cardiac operation [Unknown]
  - Basal cell carcinoma [Unknown]
  - Heart rate decreased [Unknown]
